FAERS Safety Report 5965567-0 (Version None)
Quarter: 2008Q4

REPORT INFORMATION
  Report Type: 
  Country: None (occurrence: None)
  Receive Date: 20081125
  Receipt Date: 20081119
  Transmission Date: 20090506
  Serious: Yes (Hospitalization)
  Sender: FDA-Public Use
  Company Number: US-ASTRAZENECA-2008UW26023

PATIENT
  Age: 70 Year
  Sex: Female

DRUGS (5)
  1. SYMBICORT [Suspect]
     Dosage: 160/4.5 UG, EVERY 15 MINS
     Route: 055
  2. AVELOX [Concomitant]
  3. PROTONIX [Concomitant]
  4. LOVASTATIN [Concomitant]
  5. ADVAIR HFA [Concomitant]

REACTIONS (3)
  - BRONCHOSPASM [None]
  - DRUG INEFFECTIVE [None]
  - ORAL CANDIDIASIS [None]
